FAERS Safety Report 17066959 (Version 2)
Quarter: 2019Q4

REPORT INFORMATION
  Report Type: Report from Study
  Country: IT (occurrence: IT)
  Receive Date: 20191122
  Receipt Date: 20191127
  Transmission Date: 20200122
  Serious: Yes (Hospitalization)
  Sender: FDA-Public Use
  Company Number: IT-MYLANLABS-2019M1113188

PATIENT
  Age: 74 Year
  Sex: Female

DRUGS (5)
  1. BRUFEN [Suspect]
     Active Substance: IBUPROFEN
     Indication: PAIN
     Dosage: 400 MILLIGRAM, TOTAL
     Route: 048
     Dates: start: 20190204, end: 20190204
  2. TACHIPIRINA [Interacting]
     Active Substance: ACETAMINOPHEN
     Indication: PAIN
     Dosage: 500 MILLIGRAM, TOTAL
     Route: 048
     Dates: start: 20190204, end: 20190204
  3. DELTACORTENE [Interacting]
     Active Substance: PREDNISONE
     Indication: PAIN
     Dosage: 25 MILLIGRAM, TOTAL
     Route: 048
     Dates: start: 20190204, end: 20190204
  4. COUMADIN [Concomitant]
     Active Substance: WARFARIN SODIUM
     Indication: ATRIAL FIBRILLATION
     Dosage: UNK
     Dates: start: 20110203
  5. SEQUACOR [Concomitant]
     Active Substance: BISOPROLOL
     Dosage: UNK

REACTIONS (6)
  - Vomiting [Recovering/Resolving]
  - Headache [Recovering/Resolving]
  - Pyrexia [Recovering/Resolving]
  - Drug interaction [Recovering/Resolving]
  - Facial pain [Recovering/Resolving]
  - Renal failure [Recovering/Resolving]

NARRATIVE: CASE EVENT DATE: 20190204
